FAERS Safety Report 18327694 (Version 1)
Quarter: 2020Q3

REPORT INFORMATION
  Report Type: Not Available
  Country: US (occurrence: US)
  Receive Date: 20200929
  Receipt Date: 20200929
  Transmission Date: 20201103
  Serious: No
  Sender: FDA-Public Use
  Company Number: US-NEUROCRINE BIOSCIENCES INC.-2020NBI03409

PATIENT
  Age: 40 Year
  Sex: Female

DRUGS (1)
  1. INGREZZA [Suspect]
     Active Substance: VALBENAZINE
     Indication: PRODUCT USED FOR UNKNOWN INDICATION
     Route: 048
     Dates: start: 201712

REACTIONS (9)
  - Disturbance in attention [Not Recovered/Not Resolved]
  - Swelling face [Not Recovered/Not Resolved]
  - Dyskinesia [Not Recovered/Not Resolved]
  - Head titubation [Not Recovered/Not Resolved]
  - Tic [Not Recovered/Not Resolved]
  - Bruxism [Not Recovered/Not Resolved]
  - Speech disorder [Not Recovered/Not Resolved]
  - Illness [Not Recovered/Not Resolved]
  - Depression [Not Recovered/Not Resolved]
